FAERS Safety Report 20763873 (Version 1)
Quarter: 2022Q2

REPORT INFORMATION
  Report Type: Spontaneous
  Country: US (occurrence: None)
  Receive Date: 20220428
  Receipt Date: 20220428
  Transmission Date: 20220721
  Serious: No
  Sender: FDA-Public Use
  Company Number: None

PATIENT
  Sex: Male
  Weight: 80.6 kg

DRUGS (16)
  1. XOSPATA [Suspect]
     Active Substance: GILTERITINIB
     Dosage: FREQUENCY : DAILY;?
     Route: 048
  2. ACYCLOVIR [Concomitant]
     Active Substance: ACYCLOVIR
  3. ALLOPURINOL [Concomitant]
     Active Substance: ALLOPURINOL
  4. ABILIFY [Concomitant]
     Active Substance: ARIPIPRAZOLE
  5. ASPIRIN [Concomitant]
     Active Substance: ASPIRIN
  6. ATORVASTATIN CALCIUM [Concomitant]
  7. MULTIVITAMIN MENS ORAL [Concomitant]
  8. CALCIUM CARBONATE ANTACID [Concomitant]
  9. COLACE [Concomitant]
     Active Substance: DOCUSATE SODIUM
  10. FLONASE [Concomitant]
     Active Substance: FLUTICASONE PROPIONATE
  11. KEPPRA [Concomitant]
     Active Substance: LEVETIRACETAM
  12. LEVOTHYROXINE SODIUM [Concomitant]
  13. LOSARTAN POTASSIUM [Concomitant]
  14. MIRTAZAPINE [Concomitant]
     Active Substance: MIRTAZAPINE
  15. PAXIL [Concomitant]
     Active Substance: PAROXETINE HYDROCHLORIDE
  16. WAL-BORN VITAMIN C [Concomitant]

REACTIONS (2)
  - Pneumonia aspiration [None]
  - Therapy interrupted [None]

NARRATIVE: CASE EVENT DATE: 20220427
